FAERS Safety Report 6153213-5 (Version None)
Quarter: 2009Q2

REPORT INFORMATION
  Report Type: 
  Country: None (occurrence: None)
  Receive Date: 20090413
  Receipt Date: 20090407
  Transmission Date: 20091009
  Serious: Yes (Other)
  Sender: FDA-Public Use
  Company Number: NL-MERCK-0904NLD00015

PATIENT
  Age: 79 Year
  Sex: Female

DRUGS (2)
  1. FOSAMAX [Suspect]
     Indication: OSTEOPOROSIS
     Route: 048
     Dates: start: 20000101
  2. AMOXICILLIN [Concomitant]
     Route: 048
     Dates: end: 20090129

REACTIONS (2)
  - OSTEOMYELITIS [None]
  - TRIGEMINAL NEURALGIA [None]
